FAERS Safety Report 12423980 (Version 1)
Quarter: 2016Q2

REPORT INFORMATION
  Report Type: Spontaneous
  Country: US (occurrence: None)
  Receive Date: 20160531
  Receipt Date: 20160531
  Transmission Date: 20160815
  Serious: Yes (Life-Threatening, Hospitalization)
  Sender: FDA-Public Use
  Company Number: None

PATIENT
  Age: 7 Year
  Sex: Male
  Weight: 12.52 kg

DRUGS (1)
  1. MONTELUKAST SODIUM. [Suspect]
     Active Substance: MONTELUKAST SODIUM
     Route: 048
     Dates: start: 20160528, end: 20160529

REACTIONS (6)
  - Rash [None]
  - Dyspnoea [None]
  - Product substitution issue [None]
  - Reaction to drug excipients [None]
  - Dysphagia [None]
  - Hypersensitivity [None]

NARRATIVE: CASE EVENT DATE: 20160529
